FAERS Safety Report 24725156 (Version 1)
Quarter: 2024Q4

REPORT INFORMATION
  Report Type: Spontaneous
  Country: NO (occurrence: NO)
  Receive Date: 20241212
  Receipt Date: 20241212
  Transmission Date: 20250115
  Serious: No
  Sender: ALKEM
  Company Number: NO-ALKEM LABORATORIES LIMITED-NO-ALKEM-2024-24882

PATIENT
  Age: 45 Year
  Sex: Female

DRUGS (5)
  1. LISDEXAMFETAMINE [Suspect]
     Active Substance: LISDEXAMFETAMINE
     Indication: Attention deficit hyperactivity disorder
     Dosage: 30 MILLIGRAM, BID (BEFORE SURGERY) (MORNING AND AT LUNCHTIME)
     Route: 048
  2. LISDEXAMFETAMINE [Suspect]
     Active Substance: LISDEXAMFETAMINE
     Dosage: 30 MILLIGRAM, BID (1 MONTH POST-OPERATIVE) (MORNING AND AT LUNCHTIME)
     Route: 048
  3. LISDEXAMFETAMINE [Suspect]
     Active Substance: LISDEXAMFETAMINE
     Dosage: 30 MILLIGRAM, BID (6 MONTH POST-OPERATIVE) (MORNING AND AT LUNCHTIME)
     Route: 048
  4. LISDEXAMFETAMINE [Suspect]
     Active Substance: LISDEXAMFETAMINE
     Dosage: 30 MILLIGRAM, BID (12 MONTH POST-OPERATIVE) (MORNING AND AT LUNCHTIME)
     Route: 048
  5. ACETAMINOPHEN [Concomitant]
     Active Substance: ACETAMINOPHEN
     Indication: Product used for unknown indication
     Dosage: UNK
     Route: 065

REACTIONS (1)
  - Drug metabolite level high [Unknown]
